FAERS Safety Report 9278550 (Version 1)
Quarter: 2013Q2

REPORT INFORMATION
  Report Type: Spontaneous
  Country: US (occurrence: US)
  Receive Date: 20130508
  Receipt Date: 20130508
  Transmission Date: 20140414
  Serious: Yes (Other)
  Sender: FDA-Public Use
  Company Number: US-JNJFOC-20130415252

PATIENT
  Sex: Male

DRUGS (1)
  1. INFANT^S TYLENOL [Suspect]
     Indication: PAIN
     Route: 048

REACTIONS (1)
  - Hepatic failure [Unknown]
